FAERS Safety Report 6790997-7 (Version None)
Quarter: 2010Q2

REPORT INFORMATION
  Report Type: 
  Country: None (occurrence: None)
  Receive Date: 20100624
  Receipt Date: 20100616
  Transmission Date: 20101027
  Serious: Yes (Other)
  Sender: FDA-Public Use
  Company Number: BE-BAXTER-2010BH016337

PATIENT
  Age: 42 Year
  Sex: Female

DRUGS (1)
  1. EXTRANEAL [Suspect]
     Indication: PERITONEAL DIALYSIS
     Route: 033
     Dates: start: 20080101

REACTIONS (3)
  - INTESTINAL OBSTRUCTION [None]
  - PERITONITIS [None]
  - SCLEROSING ENCAPSULATING PERITONITIS [None]
